FAERS Safety Report 6328662-2 (Version None)
Quarter: 2009Q3

REPORT INFORMATION
  Report Type: 
  Country: None (occurrence: None)
  Receive Date: 20090825
  Receipt Date: 20090825
  Transmission Date: 20100115
  Serious: No
  Sender: FDA-Public Use
  Company Number: None

PATIENT
  Age: 47 Year
  Sex: Female
  Weight: 106.1417 kg

DRUGS (1)
  1. ALLI [Suspect]
     Indication: WEIGHT DECREASED
     Dosage: 1 PILL 2PER DAY OR LESS PO
     Route: 048
     Dates: start: 20080315, end: 20090724

REACTIONS (2)
  - ABDOMINAL PAIN [None]
  - PRURITUS [None]
